FAERS Safety Report 4704284-1 (Version None)
Quarter: 2005Q2

REPORT INFORMATION
  Report Type: 
  Country: None (occurrence: None)
  Receive Date: 20050629
  Receipt Date: 20050616
  Transmission Date: 20051028
  Serious: Yes (Hospitalization, Other)
  Sender: FDA-Public Use
  Company Number: MC200500551

PATIENT
  Age: 68 Year
  Sex: Male

DRUGS (6)
  1. ANGIOMAX [Suspect]
     Indication: CORONARY ARTERY SURGERY
     Dosage: 0.75 MG/KG, BOLUS, IV BOLUS
     Route: 040
     Dates: start: 20050616, end: 20050616
  2. ANGIOMAX [Suspect]
     Dosage: 1.75 MG/KG, HR, INTRAVENOUS
     Route: 042
     Dates: start: 20050616, end: 20050616
  3. ACETYLSALICYLIC ACID SRT [Concomitant]
  4. PLAVIX [Concomitant]
  5. VERSED [Concomitant]
  6. FENTANYL [Concomitant]

REACTIONS (4)
  - ANGIONEUROTIC OEDEMA [None]
  - DEPRESSED LEVEL OF CONSCIOUSNESS [None]
  - HYPERSENSITIVITY [None]
  - HYPOTENSION [None]
